FAERS Safety Report 20418632 (Version 2)
Quarter: 2022Q1

REPORT INFORMATION
  Report Type: Spontaneous
  Country: US (occurrence: US)
  Receive Date: 20220202
  Receipt Date: 20220207
  Transmission Date: 20220423
  Serious: No
  Sender: FDA-Public Use
  Company Number: US-SANOFI-00951591

PATIENT
  Age: 11 Year
  Sex: Female

DRUGS (1)
  1. DUPIXENT [Suspect]
     Active Substance: DUPILUMAB
     Indication: Eczema
     Dosage: 200 MG, QOW
     Dates: start: 20220126

REACTIONS (3)
  - Rash papular [Unknown]
  - Rash pruritic [Unknown]
  - Product use issue [Unknown]

NARRATIVE: CASE EVENT DATE: 20220126
